FAERS Safety Report 7748077-X (Version None)
Quarter: 2011Q3

REPORT INFORMATION
  Report Type: 
  Country: None (occurrence: None)
  Receive Date: 20110913
  Receipt Date: 20110824
  Transmission Date: 20111222
  Serious: No
  Sender: FDA-Public Use
  Company Number: US-ALLERGAN-1111349US

PATIENT
  Age: 54 Year
  Sex: Female

DRUGS (5)
  1. LATISSE [Suspect]
     Indication: MADAROSIS
     Dosage: 1 GTT, QHS
     Route: 061
     Dates: start: 20110701
  2. ABRAXANE [Suspect]
     Indication: CHEMOTHERAPY
     Dosage: UNK
  3. LATISSE [Suspect]
     Dosage: UNK
     Dates: start: 20100901, end: 20110501
  4. OT EYE WETTING SOLUTION [Concomitant]
  5. LATISSE [Suspect]
     Dosage: UNK
     Dates: start: 20100601, end: 20100901

REACTIONS (3)
  - THERAPY CESSATION [None]
  - WRONG TECHNIQUE IN DRUG USAGE PROCESS [None]
  - MADAROSIS [None]
